FAERS Safety Report 17796669 (Version 3)
Quarter: 2021Q1

REPORT INFORMATION
  Report Type: Report from Study
  Country: None (occurrence: US)
  Receive Date: 20200518
  Receipt Date: 20210117
  Transmission Date: 20210419
  Serious: Yes (Hospitalization, Other)
  Sender: FDA-Public Use
  Company Number: US-ABBVIE-20K-163-3290153-00

PATIENT
  Sex: Male
  Weight: 49.94 kg

DRUGS (4)
  1. CARVEDILOL. [Concomitant]
     Active Substance: CARVEDILOL
     Indication: HYPERTENSION
     Route: 065
  2. PANTOPRAZOLE [Concomitant]
     Active Substance: PANTOPRAZOLE
     Indication: DYSPEPSIA
     Route: 065
  3. HUMIRA [Suspect]
     Active Substance: ADALIMUMAB
     Indication: CROHN^S DISEASE
     Dosage: CITRATE FREE
     Route: 058
     Dates: start: 2010
  4. HUMIRA [Suspect]
     Active Substance: ADALIMUMAB
     Route: 058

REACTIONS (13)
  - Syncope [Recovered/Resolved]
  - Vomiting [Recovered/Resolved]
  - Bipolar disorder [Recovering/Resolving]
  - Small intestinal obstruction [Recovered/Resolved]
  - Surgery [Unknown]
  - Dehydration [Recovered/Resolved]
  - Malnutrition [Not Recovered/Not Resolved]
  - Fatigue [Recovering/Resolving]
  - Anxiety [Unknown]
  - Bile acid malabsorption [Unknown]
  - Hypotension [Recovered/Resolved]
  - Crohn^s disease [Recovering/Resolving]
  - Bipolar disorder [Unknown]

NARRATIVE: CASE EVENT DATE: 2019
